FAERS Safety Report 9570979 (Version 1)
Quarter: 2013Q4

REPORT INFORMATION
  Report Type: Spontaneous
  Country: GB (occurrence: GB)
  Receive Date: 20131001
  Receipt Date: 20131001
  Transmission Date: 20140711
  Serious: Yes (Hospitalization)
  Sender: FDA-Public Use
  Company Number: GB-CELGENEUS-167-21660-13092967

PATIENT
  Sex: 0

DRUGS (2)
  1. ABRAXANE [Suspect]
     Indication: PANCREATIC CARCINOMA
     Route: 065
  2. GEMCITABINE [Concomitant]
     Indication: PANCREATIC CARCINOMA
     Route: 065

REACTIONS (1)
  - Adverse event [Unknown]
